FAERS Safety Report 14187423 (Version 1)
Quarter: 2017Q4

REPORT INFORMATION
  Report Type: Spontaneous
  Country: KE (occurrence: KE)
  Receive Date: 20171114
  Receipt Date: 20171114
  Transmission Date: 20180321
  Serious: Yes (Other)
  Sender: FDA-Public Use
  Company Number: KE-CIPLA LTD.-2017KE19510

PATIENT

DRUGS (2)
  1. ATORVASTATIN [Suspect]
     Active Substance: ATORVASTATIN
     Dosage: UNK
     Route: 065
  2. NIFEDIPINE. [Interacting]
     Active Substance: NIFEDIPINE
     Dosage: UNK
     Route: 065

REACTIONS (1)
  - Drug interaction [Unknown]
